FAERS Safety Report 25478879 (Version 1)
Quarter: 2025Q2

REPORT INFORMATION
  Report Type: Spontaneous
  Country: ZA (occurrence: ZA)
  Receive Date: 20250625
  Receipt Date: 20250625
  Transmission Date: 20250717
  Serious: Yes (Other)
  Sender: CSL BEHRING
  Company Number: ZA-ROCHE-10000308741

PATIENT
  Sex: Female

DRUGS (1)
  1. MIRCERA [Suspect]
     Active Substance: METHOXY POLYETHYLENE GLYCOL-EPOETIN BETA
     Indication: Product used for unknown indication
     Route: 065

REACTIONS (16)
  - Chronic kidney disease [Unknown]
  - Haemoglobin decreased [Not Recovered/Not Resolved]
  - Blood potassium decreased [Unknown]
  - Anion gap increased [Unknown]
  - Blood chloride decreased [Unknown]
  - Blood bicarbonate decreased [Unknown]
  - Blood urea increased [Unknown]
  - Blood creatinine increased [Unknown]
  - Blood calcium decreased [Unknown]
  - Blood phosphorus increased [Unknown]
  - C-reactive protein increased [Unknown]
  - Blood albumin decreased [Unknown]
  - Blood parathyroid hormone increased [Unknown]
  - Red blood cell count decreased [Unknown]
  - Haematocrit decreased [Unknown]
  - Monocyte count increased [Unknown]
